FAERS Safety Report 8447647-3 (Version None)
Quarter: 2012Q2

REPORT INFORMATION
  Report Type: 
  Country: None (occurrence: None)
  Receive Date: 20120619
  Receipt Date: 20120611
  Transmission Date: 20120825
  Serious: Yes (Other)
  Sender: FDA-Public Use
  Company Number: AR-BRISTOL-MYERS SQUIBB COMPANY-16577843

PATIENT
  Age: 42 Year
  Sex: Female

DRUGS (1)
  1. ORENCIA [Suspect]
     Indication: RHEUMATOID ARTHRITIS
     Dosage: NO OF INF: 01
     Route: 042
     Dates: start: 20120214

REACTIONS (6)
  - CONJUNCTIVAL HAEMORRHAGE [None]
  - ROAD TRAFFIC ACCIDENT [None]
  - ACUTE SINUSITIS [None]
  - FACE INJURY [None]
  - BRONCHITIS [None]
  - PERIORBITAL HAEMATOMA [None]
